FAERS Safety Report 4321155-3 (Version None)
Quarter: 2004Q1

REPORT INFORMATION
  Report Type: 
  Country: None (occurrence: None)
  Receive Date: 20040315
  Receipt Date: 20031110
  Transmission Date: 20041129
  Serious: Yes (Other)
  Sender: FDA-Public Use
  Company Number: PHEH2003US09937

PATIENT
  Age: 61 Year
  Sex: Female

DRUGS (5)
  1. TRILEPTAL [Suspect]
     Indication: TONIC CLONIC MOVEMENTS
     Dosage: 450 MG, BID, ORAL
     Route: 048
     Dates: start: 20020101
  2. AMLODIPINE BESYLATE [Concomitant]
  3. THYROID TAB [Concomitant]
  4. ASPIRIN [Concomitant]
  5. XANAX [Concomitant]

REACTIONS (2)
  - HYPERTENSION [None]
  - TACHYCARDIA [None]
